FAERS Safety Report 21193603 (Version 1)
Quarter: 2022Q3

REPORT INFORMATION
  Report Type: Spontaneous
  Country: US (occurrence: US)
  Receive Date: 20220810
  Receipt Date: 20220810
  Transmission Date: 20221027
  Serious: Yes (Other)
  Sender: FDA-Public Use
  Company Number: US-CELLTRION INC.-2022US012521

PATIENT

DRUGS (3)
  1. TRUXIMA [Suspect]
     Active Substance: RITUXIMAB-ABBS
     Indication: Polyarteritis nodosa
     Dosage: 1000 MG Q 24 WEEKS
  2. TRUXIMA [Suspect]
     Active Substance: RITUXIMAB-ABBS
     Dosage: 1000 MG Q 24 WEEKS
     Dates: start: 20220613
  3. TRUXIMA [Suspect]
     Active Substance: RITUXIMAB-ABBS
     Dosage: 1000 MG Q 24 WEEKS
     Dates: start: 20220626

REACTIONS (3)
  - Polyarteritis nodosa [Unknown]
  - Off label use [Unknown]
  - Inappropriate schedule of product administration [Unknown]
